FAERS Safety Report 8340196-2 (Version None)
Quarter: 2012Q2

REPORT INFORMATION
  Report Type: 
  Country: None (occurrence: None)
  Receive Date: 20120507
  Receipt Date: 20120426
  Transmission Date: 20120825
  Serious: Yes (Other)
  Sender: FDA-Public Use
  Company Number: FR-BRISTOL-MYERS SQUIBB COMPANY-16481657

PATIENT
  Sex: Female

DRUGS (4)
  1. REYATAZ [Suspect]
     Route: 064
  2. NORVIR [Suspect]
     Route: 064
  3. TRUVADA [Suspect]
     Route: 064
  4. PREZISTA [Suspect]
     Route: 064

REACTIONS (1)
  - GENITAL LABIAL ADHESIONS [None]
